FAERS Safety Report 9157298 (Version 1)
Quarter: 2013Q1

REPORT INFORMATION
  Report Type: Spontaneous
  Country: US (occurrence: None)
  Receive Date: 20130308
  Receipt Date: 20130308
  Transmission Date: 20140127
  Serious: Yes (Life-Threatening, Other)
  Sender: FDA-Public Use
  Company Number: None

PATIENT
  Age: 44 Year
  Sex: Male
  Weight: 176.9 kg

DRUGS (1)
  1. DULERA [Suspect]
     Indication: ASTHMA
     Dosage: 200-5MCG 4 PUFFS@DAY
     Dates: start: 20130201

REACTIONS (11)
  - Dyspnoea [None]
  - Asthma [None]
  - Dizziness [None]
  - Asthenia [None]
  - Pain [None]
  - Dizziness [None]
  - Insomnia [None]
  - Chest pain [None]
  - Anxiety [None]
  - Fear [None]
  - Wheezing [None]
